FAERS Safety Report 6391297-X (Version None)
Quarter: 2009Q4

REPORT INFORMATION
  Report Type: 
  Country: None (occurrence: None)
  Receive Date: 20091007
  Receipt Date: 20090925
  Transmission Date: 20100525
  Serious: Yes (Hospitalization)
  Sender: FDA-Public Use
  Company Number: PHHY2009MX37504

PATIENT
  Sex: Female

DRUGS (2)
  1. STALEVO 100 [Suspect]
     Indication: PARKINSON'S DISEASE
     Dosage: 3 TABLETS (100/25/200 MG) PER DAY
     Route: 048
     Dates: start: 20040101, end: 20090902
  2. STALEVO 100 [Suspect]
     Dosage: 3 TABLETS (100/25/200 MG) PER DAY
     Route: 048
     Dates: start: 20090903

REACTIONS (6)
  - ANOXIA [None]
  - CEREBRAL ARTERY OCCLUSION [None]
  - DISCOMFORT [None]
  - DISORIENTATION [None]
  - DIZZINESS [None]
  - HYPERHIDROSIS [None]
